FAERS Safety Report 5314949-9 (Version None)
Quarter: 2007Q2

REPORT INFORMATION
  Report Type: 
  Country: None (occurrence: None)
  Receive Date: 20070502
  Receipt Date: 20070418
  Transmission Date: 20071010
  Serious: Yes (Death, Other)
  Sender: FDA-Public Use
  Company Number: US-ELI_LILLY_AND_COMPANY-US200704003077

PATIENT
  Age: 73 Year
  Sex: Male

DRUGS (3)
  1. CYMBALTA [Suspect]
     Indication: PAIN
     Dosage: UNK, UNK
     Route: 048
  2. ACTOS [Concomitant]
     Indication: DIABETES MELLITUS
  3. ZOCOR [Concomitant]
     Indication: BLOOD CHOLESTEROL INCREASED

REACTIONS (4)
  - BONE MARROW FAILURE [None]
  - DEATH [None]
  - LEUKOPENIA [None]
  - PETECHIAE [None]
